FAERS Safety Report 6124385-3 (Version None)
Quarter: 2009Q1

REPORT INFORMATION
  Report Type: 
  Country: None (occurrence: None)
  Receive Date: 20090317
  Receipt Date: 20090303
  Transmission Date: 20090719
  Serious: Yes (Hospitalization)
  Sender: FDA-Public Use
  Company Number: 205788

PATIENT
  Age: 65 Year
  Sex: Male

DRUGS (2)
  1. LIDOCAINE HYDROCHLORIDE [Suspect]
     Indication: LOCAL ANAESTHESIA
     Dosage: ONCE, INTRA-ARTICULAR
     Route: 014
  2. METHYLPREDNISOLONE ACETATE [Suspect]
     Indication: JOINT INJECTION
     Dosage: ONCE, INTRA-ARTICULAR
     Route: 014
     Dates: start: 20090112, end: 20090112

REACTIONS (2)
  - INJECTION SITE INFECTION [None]
  - SEPTIC ARTHRITIS STAPHYLOCOCCAL [None]
